FAERS Safety Report 13738868 (Version 2)
Quarter: 2017Q3

REPORT INFORMATION
  Report Type: Spontaneous
  Country: JP (occurrence: JP)
  Receive Date: 20170710
  Receipt Date: 20170713
  Transmission Date: 20171127
  Serious: Yes (Life-Threatening, Hospitalization, Other)
  Sender: FDA-Public Use
  Company Number: JP-SA-2017SA123092

PATIENT
  Age: 72 Year
  Sex: Male

DRUGS (2)
  1. CISPLATIN. [Suspect]
     Active Substance: CISPLATIN
     Indication: SQUAMOUS CELL CARCINOMA
     Route: 065
  2. DOCETAXEL. [Suspect]
     Active Substance: DOCETAXEL
     Indication: SQUAMOUS CELL CARCINOMA
     Route: 065

REACTIONS (5)
  - Oropharyngeal pain [Recovering/Resolving]
  - Mucous membrane disorder [Recovering/Resolving]
  - Tumour necrosis [Recovering/Resolving]
  - Cough [Recovering/Resolving]
  - Oesophagobronchial fistula [Recovered/Resolved]
